FAERS Safety Report 6743624 (Version 14)
Quarter: 2013Q4

REPORT INFORMATION
  Report Type: Spontaneous
  Country: US (occurrence: US)
  Receive Date: 20080829
  Receipt Date: 20131204
  Transmission Date: 20140711
  Serious: Yes (Hospitalization, Other)
  Sender: FDA-Public Use
  Company Number: PHEH2008US07578

PATIENT
  Age: 56 Year
  Sex: Male

DRUGS (38)
  1. ZOMETA [Suspect]
     Indication: METASTASES TO BONE
     Dosage: 4 MG, UNK
     Route: 042
  2. ZOMETA [Suspect]
     Indication: BONE LOSS
  3. OXYGEN THERAPY [Concomitant]
  4. OXYCONTIN [Concomitant]
  5. CHEMOTHERAPEUTICS NOS [Concomitant]
  6. NEUPOGEN [Concomitant]
  7. MOTRIN [Concomitant]
  8. TAXOTERE [Concomitant]
  9. COUMADIN ^BOOTS^ [Concomitant]
  10. LISINOPRIL [Concomitant]
  11. DESYREL [Concomitant]
  12. AMBIEN [Concomitant]
  13. CASODEX [Concomitant]
  14. PLAVIX [Concomitant]
  15. LEUPROLIDE ACETATE [Concomitant]
  16. ASPIRIN ^BAYER^ [Concomitant]
  17. CALCIUM D SANDOZ [Concomitant]
  18. MULTI-VITAMINS VITAFIT [Concomitant]
  19. MITOXANTRONE [Concomitant]
  20. PREDNISONE [Concomitant]
  21. LOPRESSOR [Concomitant]
     Dosage: 25 MG, BID
  22. ZESTORETIC ^HAESSLE^ [Concomitant]
  23. DESERIL [Concomitant]
  24. CADUET [Concomitant]
  25. AVANDAMET [Concomitant]
  26. STARLIX [Concomitant]
  27. NITROGLIN [Concomitant]
  28. PROTONIX ^PHARMACIA^ [Concomitant]
  29. ZOCOR ^DIECKMANN^ [Concomitant]
  30. LEVAQUIN [Concomitant]
  31. BLOOD CELLS, PACKED HUMAN [Concomitant]
     Dates: start: 20080224
  32. FLAGYL [Concomitant]
  33. LOMOTIL [Concomitant]
  34. KLOR-CON [Concomitant]
  35. TRAZODONE [Concomitant]
  36. ZOLOFT (SERTRALINE HYDROCHLORIDE) [Concomitant]
  37. AMARYL [Concomitant]
  38. HYDROCHLOROTHIAZIDE [Concomitant]

REACTIONS (84)
  - Sepsis [Unknown]
  - Anaemia [Unknown]
  - Ataxia [Unknown]
  - Coronary artery disease [Unknown]
  - Mitral valve incompetence [Unknown]
  - Pleural effusion [Unknown]
  - Spinal osteoarthritis [Unknown]
  - Osteonecrosis of jaw [Unknown]
  - Injury [Unknown]
  - Pain [Unknown]
  - Anxiety [Unknown]
  - Pain in jaw [Unknown]
  - Anhedonia [Unknown]
  - Activities of daily living impaired [Unknown]
  - Mental disorder [Unknown]
  - Bone disorder [Unknown]
  - Fall [Unknown]
  - Face injury [Unknown]
  - Tooth fracture [Unknown]
  - Splenomegaly [Unknown]
  - Ascites [Unknown]
  - Paracentesis [Unknown]
  - Oesophagitis [Unknown]
  - Hiatus hernia [Unknown]
  - Large intestine polyp [Unknown]
  - Diverticulitis [Unknown]
  - Dyspnoea [Unknown]
  - Constipation [Unknown]
  - Oedema [Unknown]
  - Gastrooesophageal reflux disease [Unknown]
  - Mouth ulceration [Unknown]
  - Gingival bleeding [Unknown]
  - Decreased appetite [Unknown]
  - Gait disturbance [Unknown]
  - Faecal incontinence [Unknown]
  - Urinary incontinence [Unknown]
  - Nausea [Unknown]
  - Dehydration [Unknown]
  - Herpes simplex [Recovering/Resolving]
  - Dupuytren^s contracture [Unknown]
  - Haemochromatosis [Unknown]
  - Atelectasis [Unknown]
  - Depression [Unknown]
  - Deep vein thrombosis [Unknown]
  - Gynaecomastia [Unknown]
  - Hepatic steatosis [Unknown]
  - Haemorrhoids [Unknown]
  - Non-cardiac chest pain [Unknown]
  - Hypotension [Unknown]
  - Diarrhoea [Unknown]
  - Confusional state [Unknown]
  - Lung infiltration [Unknown]
  - Hepatic cirrhosis [Unknown]
  - Catheterisation cardiac abnormal [Unknown]
  - Metastases to liver [Unknown]
  - Hypokalaemia [Unknown]
  - Flatulence [Unknown]
  - Bone lesion [Unknown]
  - Pulmonary mass [Unknown]
  - Cardiomegaly [Unknown]
  - Hyperkeratosis [Unknown]
  - Retroperitoneal lymphadenopathy [Unknown]
  - Vomiting projectile [Unknown]
  - Splenic granuloma [Unknown]
  - Coagulopathy [Unknown]
  - Leukopenia [Unknown]
  - Intervertebral disc protrusion [Unknown]
  - Influenza like illness [Unknown]
  - Diverticulum intestinal [Unknown]
  - Muscle hypertrophy [Unknown]
  - Oral disorder [Unknown]
  - Thrombocytopenia [Unknown]
  - Left ventricular dysfunction [Unknown]
  - Bronchitis [Unknown]
  - Syncope [Unknown]
  - Hepatosplenomegaly [Unknown]
  - Aortic arteriosclerosis [Unknown]
  - Aortic calcification [Unknown]
  - Osteoarthritis [Unknown]
  - Metastases to lung [Unknown]
  - Metastases to spine [Unknown]
  - Renal lipomatosis [Unknown]
  - Gallbladder disorder [Unknown]
  - Bone pain [Unknown]
